FAERS Safety Report 8332616-4 (Version None)
Quarter: 2012Q2

REPORT INFORMATION
  Report Type: 
  Country: None (occurrence: None)
  Receive Date: 20120503
  Receipt Date: 20120418
  Transmission Date: 20120825
  Serious: Yes (Other)
  Sender: FDA-Public Use
  Company Number: CN-JNJFOC-20120501230

PATIENT
  Sex: Female
  Weight: 55 kg

DRUGS (1)
  1. SPORANOX [Suspect]
     Indication: VAGINAL INFECTION
     Route: 048
     Dates: start: 20110526, end: 20110526

REACTIONS (2)
  - STRIDOR [None]
  - DYSPNOEA [None]
